FAERS Safety Report 6111001-X (Version None)
Quarter: 2009Q1

REPORT INFORMATION
  Report Type: 
  Country: None (occurrence: None)
  Receive Date: 20090311
  Receipt Date: 20080902
  Transmission Date: 20090719
  Serious: No
  Sender: FDA-Public Use
  Company Number: US-KINGPHARMUSA00001-K200800025

PATIENT
  Age: 9 Year
  Sex: Male
  Weight: 43.084 kg

DRUGS (4)
  1. ALTACE [Suspect]
     Indication: PRURITUS
     Dosage: UP TO 30 MG QPM, PRN
     Dates: start: 20070901, end: 20071201
  2. PREVACID [Concomitant]
     Indication: DYSPEPSIA
     Route: 048
  3. ALLERCLEAR [Concomitant]
     Indication: HYPERSENSITIVITY
     Dosage: UNK, PRN
  4. ALLERGY SHOTS [Concomitant]
     Indication: HYPERSENSITIVITY
     Route: 051

REACTIONS (11)
  - ABDOMINAL DISCOMFORT [None]
  - ABDOMINAL PAIN UPPER [None]
  - CHEST PAIN [None]
  - DIZZINESS [None]
  - DRUG DISPENSING ERROR [None]
  - FATIGUE [None]
  - FEELING ABNORMAL [None]
  - HEADACHE [None]
  - NAUSEA [None]
  - PARAESTHESIA [None]
  - VOMITING [None]
